FAERS Safety Report 21564838 (Version 6)
Quarter: 2023Q2

REPORT INFORMATION
  Report Type: Report from Study
  Country: US (occurrence: US)
  Receive Date: 20221108
  Receipt Date: 20230614
  Transmission Date: 20230721
  Serious: No
  Sender: FDA-Public Use
  Company Number: US-002147023-NVSC2022US250289

PATIENT
  Sex: Female

DRUGS (2)
  1. COSENTYX [Suspect]
     Active Substance: SECUKINUMAB
     Indication: Psoriatic arthropathy
     Dosage: 300 MG (ONCE A WEEK FOR 5 WEEKS)
     Route: 058
     Dates: start: 20221014
  2. COSENTYX [Suspect]
     Active Substance: SECUKINUMAB
     Dosage: 300 MG, QMO (Q 4 WEEKS)
     Route: 058

REACTIONS (2)
  - Injection site bruising [Unknown]
  - Diarrhoea [Not Recovered/Not Resolved]
